FAERS Safety Report 20058600 (Version 1)
Quarter: 2021Q4

REPORT INFORMATION
  Report Type: Spontaneous
  Country: NL (occurrence: NL)
  Receive Date: 20211111
  Receipt Date: 20211111
  Transmission Date: 20220304
  Serious: Yes (Other)
  Sender: FDA-Public Use
  Company Number: NL-PENSA-202102756

PATIENT
  Age: 74 Year
  Sex: Male

DRUGS (7)
  1. OMEPRAZOLE [Suspect]
     Active Substance: OMEPRAZOLE
  2. AMLODIPINE BESYLATE [Concomitant]
     Active Substance: AMLODIPINE BESYLATE
     Indication: Hypertension
  3. SIMVASTATIN [Concomitant]
     Active Substance: SIMVASTATIN
  4. ACETYLSALICYLIC ACID 80mg [Concomitant]
  5. METOPROLOL 150 mg [Concomitant]
     Indication: Hypertension
  6. INSULIN NOS [Concomitant]
     Active Substance: INSULIN NOS
     Indication: Type 2 diabetes mellitus
  7. EZETIMIBE [Concomitant]
     Active Substance: EZETIMIBE

REACTIONS (3)
  - Toxicity to various agents [Recovering/Resolving]
  - Nephropathy toxic [Recovering/Resolving]
  - Chronic kidney disease [Not Recovered/Not Resolved]
